FAERS Safety Report 5166393-5 (Version None)
Quarter: 2006Q4

REPORT INFORMATION
  Report Type: 
  Country: None (occurrence: None)
  Receive Date: 20061129
  Receipt Date: 20061114
  Transmission Date: 20070319
  Serious: Yes (Hospitalization)
  Sender: FDA-Public Use
  Company Number: 061127-0001048

PATIENT
  Age: 12 Year
  Sex: Male

DRUGS (39)
  1. DACTINOMYCIN [Suspect]
     Indication: CHEMOTHERAPY
     Dosage: 2.45 MG; QD; IV
     Route: 042
     Dates: start: 20060714, end: 20060714
  2. DACTINOMYCIN [Suspect]
     Indication: CHEMOTHERAPY
     Dosage: 2.45 MG; QD; IV
     Route: 042
     Dates: start: 20060804, end: 20060804
  3. DACTINOMYCIN [Suspect]
     Indication: CHEMOTHERAPY
     Dosage: 2.45 MG; QD; IV
     Route: 042
     Dates: start: 20060804, end: 20060824
  4. DACTINOMYCIN [Suspect]
     Indication: CHEMOTHERAPY
     Dosage: 2.45 MG; QD; IV
     Route: 042
     Dates: start: 20060921
  5. APREPITANT [Suspect]
     Indication: PROPHYLAXIS OF NAUSEA AND VOMITING
     Dosage: SEE IMAGE
     Route: 048
     Dates: start: 20060714, end: 20060714
  6. APREPITANT [Suspect]
     Indication: PROPHYLAXIS OF NAUSEA AND VOMITING
     Dosage: SEE IMAGE
     Route: 048
     Dates: start: 20060715, end: 20060716
  7. APREPITANT [Suspect]
     Indication: PROPHYLAXIS OF NAUSEA AND VOMITING
     Dosage: SEE IMAGE
     Route: 048
     Dates: start: 20060804, end: 20060804
  8. APREPITANT [Suspect]
     Indication: PROPHYLAXIS OF NAUSEA AND VOMITING
     Dosage: SEE IMAGE
     Route: 048
     Dates: start: 20060805, end: 20060806
  9. APREPITANT [Suspect]
     Indication: PROPHYLAXIS OF NAUSEA AND VOMITING
     Dosage: SEE IMAGE
     Route: 048
     Dates: start: 20060824, end: 20060824
  10. APREPITANT [Suspect]
     Indication: PROPHYLAXIS OF NAUSEA AND VOMITING
     Dosage: SEE IMAGE
     Route: 048
     Dates: start: 20060825, end: 20060826
  11. APREPITANT [Suspect]
     Indication: PROPHYLAXIS OF NAUSEA AND VOMITING
     Dosage: SEE IMAGE
     Route: 048
     Dates: start: 20060921, end: 20060921
  12. APREPITANT [Suspect]
     Indication: PROPHYLAXIS OF NAUSEA AND VOMITING
     Dosage: SEE IMAGE
     Route: 048
     Dates: start: 20060922, end: 20060923
  13. DECADRON [Suspect]
     Indication: PROPHYLAXIS OF NAUSEA AND VOMITING
     Dosage: SEE IMAGE
     Route: 048
     Dates: start: 20060714, end: 20060714
  14. DECADRON [Suspect]
     Indication: PROPHYLAXIS OF NAUSEA AND VOMITING
     Dosage: SEE IMAGE
     Route: 048
     Dates: start: 20060715, end: 20060717
  15. DECADRON [Suspect]
     Indication: PROPHYLAXIS OF NAUSEA AND VOMITING
     Dosage: SEE IMAGE
     Route: 048
     Dates: start: 20060804, end: 20060804
  16. DECADRON [Suspect]
     Indication: PROPHYLAXIS OF NAUSEA AND VOMITING
     Dosage: SEE IMAGE
     Route: 048
     Dates: start: 20060805, end: 20060807
  17. DECADRON [Suspect]
     Indication: PROPHYLAXIS OF NAUSEA AND VOMITING
     Dosage: SEE IMAGE
     Route: 048
     Dates: start: 20060824, end: 20060824
  18. DECADRON [Suspect]
     Indication: PROPHYLAXIS OF NAUSEA AND VOMITING
     Dosage: SEE IMAGE
     Route: 048
     Dates: start: 20060825, end: 20060827
  19. DECADRON [Suspect]
     Indication: PROPHYLAXIS OF NAUSEA AND VOMITING
     Dosage: SEE IMAGE
     Route: 048
     Dates: start: 20060921, end: 20060921
  20. DECADRON [Suspect]
     Indication: PROPHYLAXIS OF NAUSEA AND VOMITING
     Dosage: SEE IMAGE
     Route: 048
     Dates: start: 20060922, end: 20060924
  21. ONDANSETRON HCL [Suspect]
     Indication: PROPHYLAXIS OF NAUSEA AND VOMITING
     Dosage: 24 MG; TID; IV
     Route: 042
     Dates: start: 20060714, end: 20060715
  22. ONDANSETRON HCL [Suspect]
     Indication: PROPHYLAXIS OF NAUSEA AND VOMITING
     Dosage: 24 MG; TID; IV
     Route: 042
     Dates: start: 20060804, end: 20060805
  23. ONDANSETRON HCL [Suspect]
     Indication: PROPHYLAXIS OF NAUSEA AND VOMITING
     Dosage: 24 MG; TID; IV
     Route: 042
     Dates: start: 20060824, end: 20060825
  24. ONDANSETRON HCL [Suspect]
     Indication: PROPHYLAXIS OF NAUSEA AND VOMITING
     Dosage: 24 MG; TID; IV
     Route: 042
     Dates: start: 20060921, end: 20060922
  25. VINCRISTINE SULFATE [Suspect]
     Indication: PROPHYLAXIS OF NAUSEA AND VOMITING
     Dosage: 2 MG; TID; IV
     Route: 042
     Dates: start: 20060714, end: 20060714
  26. VINCRISTINE SULFATE [Suspect]
     Indication: PROPHYLAXIS OF NAUSEA AND VOMITING
     Dosage: 2 MG; TID; IV
     Route: 042
     Dates: start: 20060804, end: 20060804
  27. VINCRISTINE SULFATE [Suspect]
     Indication: PROPHYLAXIS OF NAUSEA AND VOMITING
     Dosage: 2 MG; TID; IV
     Route: 042
     Dates: start: 20060824, end: 20060824
  28. VINCRISTINE SULFATE [Suspect]
     Indication: PROPHYLAXIS OF NAUSEA AND VOMITING
     Dosage: 2 MG; TID; IV
     Route: 042
     Dates: start: 20060926, end: 20060926
  29. CYCLOPHOSPHAMIDE [Suspect]
     Indication: PROPHYLAXIS OF NAUSEA AND VOMITING
     Dosage: 3390 MG; QD; IV
     Route: 042
     Dates: start: 20060714
  30. CYCLOPHOSPHAMIDE [Suspect]
     Indication: PROPHYLAXIS OF NAUSEA AND VOMITING
     Dosage: 3390 MG; QD; IV
     Route: 042
     Dates: start: 20060804
  31. CYCLOPHOSPHAMIDE [Suspect]
     Indication: PROPHYLAXIS OF NAUSEA AND VOMITING
     Dosage: 3390 MG; QD; IV
     Route: 042
     Dates: start: 20060824
  32. CYCLOPHOSPHAMIDE [Suspect]
     Indication: PROPHYLAXIS OF NAUSEA AND VOMITING
     Dosage: 3390 MG; QD; IV
     Route: 042
     Dates: start: 20060921
  33. MAGNESIUM SULFATE [Concomitant]
  34. NEULASTA [Concomitant]
  35. SEPTRA [Concomitant]
  36. CALCIUM CARBONATE [Concomitant]
  37. DRONABINOL [Concomitant]
  38. LORAZEPAM [Concomitant]
  39. SENNA [Concomitant]

REACTIONS (6)
  - BLOOD CULTURE POSITIVE [None]
  - CYSTITIS HAEMORRHAGIC [None]
  - FEBRILE NEUTROPENIA [None]
  - HAEMOGLOBIN DECREASED [None]
  - PLATELET COUNT DECREASED [None]
  - STAPHYLOCOCCAL INFECTION [None]
